FAERS Safety Report 8130992-9 (Version None)
Quarter: 2012Q1

REPORT INFORMATION
  Report Type: 
  Country: None (occurrence: None)
  Receive Date: 20120208
  Receipt Date: 20120208
  Transmission Date: 20120608
  Serious: No
  Sender: FDA-Public Use
  Company Number: None

PATIENT
  Sex: Male

DRUGS (7)
  1. NIACIN [Concomitant]
  2. LOVASTATIN [Concomitant]
  3. COPAXONE [Concomitant]
  4. FINASTERIDE [Concomitant]
  5. AMPYRA [Suspect]
     Indication: MULTIPLE SCLEROSIS
     Dosage: AMPYRA 10MG Q12HOURS ORAL
     Route: 048
     Dates: start: 20110520, end: 20110911
  6. TAMSULOSIN HCL [Concomitant]
  7. ALLOPURINOL [Concomitant]

REACTIONS (3)
  - CONDITION AGGRAVATED [None]
  - INSOMNIA [None]
  - GAIT DISTURBANCE [None]
